FAERS Safety Report 7361163-1 (Version None)
Quarter: 2011Q1

REPORT INFORMATION
  Report Type: 
  Country: None (occurrence: None)
  Receive Date: 20110315
  Receipt Date: 20110315
  Transmission Date: 20110831
  Serious: Yes (Other)
  Sender: FDA-Public Use
  Company Number: None

PATIENT
  Age: 72 Year
  Sex: Female

DRUGS (1)
  1. EVISTA [Suspect]
     Indication: BREAST NEOPLASM
     Dosage: 60 MG 1 A DAY
     Dates: start: 20060814, end: 20070804

REACTIONS (2)
  - UTERINE CANCER [None]
  - RECTAL NEOPLASM [None]
